FAERS Safety Report 7833074 (Version 2)
Quarter: 2014Q3

REPORT INFORMATION
  Report Type: Spontaneous
  Country: GB (occurrence: GB)
  Receive Date: 20110228
  Receipt Date: 20140814
  Transmission Date: 20150326
  Serious: Yes (Other)
  Sender: FDA-Public Use
  Company Number: GB-ROCHE-760414

PATIENT
  Age: 29 Year
  Sex: Female
  Weight: 102 kg

DRUGS (2)
  1. ORLISTAT [Suspect]
     Active Substance: ORLISTAT
     Indication: OBESITY
     Route: 048
     Dates: start: 20101129, end: 20110207
  2. CERAZETTE (UNITED KINGDOM) [Suspect]
     Active Substance: DESOGESTREL
     Indication: CONTRACEPTION
     Route: 048
     Dates: start: 20101026, end: 20110207

REACTIONS (3)
  - Pregnancy on oral contraceptive [Unknown]
  - No adverse event [Unknown]
  - Exposure during pregnancy [None]
